FAERS Safety Report 9470385 (Version 1)
Quarter: 2013Q3

REPORT INFORMATION
  Report Type: Spontaneous
  Country: US (occurrence: US)
  Receive Date: 20130822
  Receipt Date: 20130822
  Transmission Date: 20140515
  Serious: Yes (Other)
  Sender: FDA-Public Use
  Company Number: US-SANOFI-AVENTIS-2013SA022358

PATIENT
  Age: 61 Year
  Sex: Male
  Weight: 98.63 kg

DRUGS (4)
  1. MULTAQ [Suspect]
     Indication: ATRIAL FIBRILLATION
     Route: 065
     Dates: start: 20121229, end: 2013
  2. XARELTO [Suspect]
     Indication: ATRIAL FIBRILLATION
     Route: 048
     Dates: start: 20121229
  3. XARELTO [Suspect]
     Indication: CEREBROVASCULAR ACCIDENT PROPHYLAXIS
     Route: 048
     Dates: start: 20121229
  4. FLOMAX [Concomitant]
     Dates: start: 1993

REACTIONS (5)
  - Atrial fibrillation [Not Recovered/Not Resolved]
  - Drug ineffective [Not Recovered/Not Resolved]
  - Headache [Not Recovered/Not Resolved]
  - Dyspnoea [Not Recovered/Not Resolved]
  - Malaise [Not Recovered/Not Resolved]
